FAERS Safety Report 25942049 (Version 1)
Quarter: 2025Q4

REPORT INFORMATION
  Report Type: Spontaneous
  Country: US (occurrence: US)
  Receive Date: 20251020
  Receipt Date: 20251020
  Transmission Date: 20260118
  Serious: No
  Sender: GLAUKOS
  Company Number: US-GLK-000688

PATIENT
  Age: 80 Year
  Sex: Female

DRUGS (1)
  1. IDOSE TR [Suspect]
     Active Substance: TRAVOPROST
     Indication: Glaucoma
     Dosage: OPERATED ON LEFT EYE (OS)
     Route: 047
     Dates: start: 20251001, end: 20251001

REACTIONS (2)
  - Vision blurred [Recovering/Resolving]
  - Dry eye [Unknown]

NARRATIVE: CASE EVENT DATE: 20251002
